FAERS Safety Report 5191919-5 (Version None)
Quarter: 2006Q4

REPORT INFORMATION
  Report Type: 
  Country: None (occurrence: None)
  Receive Date: 20061227
  Receipt Date: 20061221
  Transmission Date: 20070319
  Serious: Yes (Other)
  Sender: FDA-Public Use
  Company Number: US-AVENTIS-200620249US

PATIENT
  Age: 42 Year
  Sex: Male

DRUGS (4)
  1. ENOXAPARIN SODIUM [Suspect]
     Indication: THROMBOSIS PROPHYLAXIS
     Route: 058
  2. ENOXAPARIN SODIUM [Suspect]
     Route: 058
  3. UNFRACTIONED HEPARIN [Concomitant]
     Dosage: DOSE: UNK
  4. UNFRACTIONED HEPARIN [Concomitant]
     Dosage: DOSE: UNK

REACTIONS (6)
  - APALLIC SYNDROME [None]
  - HAEMOGLOBIN DECREASED [None]
  - PLATELET COUNT INCREASED [None]
  - THROMBOCYTHAEMIA [None]
  - WHITE BLOOD CELL COUNT DECREASED [None]
  - WHITE BLOOD CELL COUNT INCREASED [None]
